FAERS Safety Report 13347073 (Version 4)
Quarter: 2017Q2

REPORT INFORMATION
  Report Type: Spontaneous
  Country: CH (occurrence: CH)
  Receive Date: 20170317
  Receipt Date: 20170421
  Transmission Date: 20170830
  Serious: Yes (Hospitalization)
  Sender: FDA-Public Use
  Company Number: CH-PFIZER INC-2017115148

PATIENT
  Age: 92 Year
  Sex: Male
  Weight: 69.7 kg

DRUGS (10)
  1. CYKLOKAPRON [Suspect]
     Active Substance: TRANEXAMIC ACID
     Indication: ANAEMIA
  2. PERINDOPRIL ACTAVIS [Concomitant]
     Active Substance: PERINDOPRIL
     Indication: HYPERTENSION
     Dosage: 4 MG, 1X/DAY
     Route: 048
  3. ZOLPIDEM MEPHA [Concomitant]
     Indication: INSOMNIA
     Dosage: 10 MG, 1X/DAY
     Route: 048
  4. CYKLOKAPRON [Suspect]
     Active Substance: TRANEXAMIC ACID
     Indication: LOWER GASTROINTESTINAL HAEMORRHAGE
     Dosage: 1 G, 3X/DAY
     Route: 042
     Dates: start: 20161213, end: 20161216
  5. AMLODIPIN ACTAVIS /00972402/ [Concomitant]
     Active Substance: AMLODIPINE BESYLATE
     Indication: HYPERTENSION
     Dosage: 5 MG, 1X/DAY
     Route: 048
  6. LYRICA [Suspect]
     Active Substance: PREGABALIN
     Dosage: 50 MG, 3X/DAY
     Route: 048
     Dates: start: 20161217
  7. LYRICA [Suspect]
     Active Substance: PREGABALIN
     Indication: NEUROPATHY PERIPHERAL
     Dosage: 50 MG, 3X/DAY
     Route: 048
     Dates: end: 20161211
  8. MIRTAZAPIN ACTAVIS [Concomitant]
     Active Substance: MIRTAZAPINE
     Indication: INSOMNIA
     Dosage: HALF DOSE FORM ONCE DAILY
     Route: 048
  9. ACIDUM FOLICUM [Concomitant]
     Active Substance: FOLIC ACID
     Dosage: 5 MG, WEEKLY
     Route: 048
  10. ASPIRIN CARDIO [Concomitant]
     Active Substance: ASPIRIN
     Indication: CORONARY ARTERY DISEASE
     Dosage: 100 MG, 1X/DAY
     Route: 048

REACTIONS (2)
  - Visual impairment [Recovering/Resolving]
  - Withdrawal syndrome [Recovering/Resolving]

NARRATIVE: CASE EVENT DATE: 20161215
